FAERS Safety Report 7884639 (Version 2)
Quarter: 2012Q4

REPORT INFORMATION
  Report Type: 
  Country: DE (occurrence: DE)
  Receive Date: 20110405
  Receipt Date: 20121112
  Transmission Date: 20130627
  Serious: Yes (Hospitalization, Other)
  Sender: FDA-Public Use
  Company Number: DE-RANBAXY-2011R1-43326

PATIENT
  Age: 50 Year

DRUGS (8)
  1. CIPROFLOXACIN [Suspect]
     Indication: SEPSIS
     Dosage: 400 mg bid
     Route: 042
  2. AMIODARONE [Suspect]
     Indication: ARRHYTHMIA
     Route: 042
  3. ERYTHROMYCIN [Suspect]
     Indication: OESOPHAGOGASTRODUODENOSCOPY
     Dosage: Unk
     Route: 042
  4. PANTOPRAZOLE [Concomitant]
     Indication: ANTACID THERAPY
     Route: 042
  5. PANTOPRAZOLE [Concomitant]
     Indication: ANTACID THERAPY
     Dosage: 25mg/h
     Route: 042
  6. HEMOPRESIN [Concomitant]
     Indication: VASOCONSTRICTION
     Dosage: 2 mg q4h
     Route: 042
  7. VITAMIN K [Concomitant]
     Indication: COAGULOPATHY
     Route: 042
  8. INSULIN [Concomitant]
     Indication: HYPERGLYCAEMIA
     Dosage: UNK
     Route: 065

REACTIONS (3)
  - Torsade de pointes [Recovering/Resolving]
  - Tachycardia [Recovering/Resolving]
  - Drug interaction [Recovering/Resolving]
